FAERS Safety Report 6721595-9 (Version None)
Quarter: 2010Q2

REPORT INFORMATION
  Report Type: 
  Country: None (occurrence: None)
  Receive Date: 20100512
  Receipt Date: 20100428
  Transmission Date: 20101027
  Serious: Yes (Other)
  Sender: FDA-Public Use
  Company Number: PHHY2010US27605

PATIENT
  Sex: Female

DRUGS (5)
  1. EXFORGE HCT [Suspect]
     Dosage: 320/10/25 MG
  2. MULTI-VITAMINS [Concomitant]
  3. ANALGESICS [Concomitant]
  4. ADVIL [Concomitant]
  5. ORTOSTAT [Concomitant]

REACTIONS (2)
  - ALOPECIA [None]
  - SURGERY [None]
